FAERS Safety Report 12192553 (Version 2)
Quarter: 2016Q2

REPORT INFORMATION
  Report Type: Report from Study
  Country: CO (occurrence: CO)
  Receive Date: 20160318
  Receipt Date: 20160414
  Transmission Date: 20160815
  Serious: Yes (Death, Hospitalization)
  Sender: FDA-Public Use
  Company Number: CO-ABBVIE-16P-036-1586053-00

PATIENT
  Age: 66 Year
  Sex: Female
  Weight: 50 kg

DRUGS (1)
  1. ZEMPLAR [Suspect]
     Active Substance: PARICALCITOL
     Indication: HYPERPARATHYROIDISM SECONDARY
     Route: 048
     Dates: start: 20150219, end: 20160105

REACTIONS (2)
  - Cerebral ischaemia [Not Recovered/Not Resolved]
  - Cardio-respiratory arrest [Fatal]

NARRATIVE: CASE EVENT DATE: 20160218
